FAERS Safety Report 5146995-2 (Version None)
Quarter: 2006Q4

REPORT INFORMATION
  Report Type: 
  Country: None (occurrence: None)
  Receive Date: 20061103
  Receipt Date: 20061016
  Transmission Date: 20070319
  Serious: Yes (Disabling, Other)
  Sender: FDA-Public Use
  Company Number: 2006BL006267

PATIENT
  Age: 45 Year
  Sex: Male

DRUGS (4)
  1. DEXAMETHASONE SODIUM PHOSPHATE [Suspect]
     Indication: ANTIINFLAMMATORY THERAPY
     Dosage: 4 TIMES A DAY; OPHTHALMIC
     Route: 047
  2. PHOSPHATE-BUFFERED SALINE [Suspect]
     Indication: EYE IRRIGATION
     Dosage: 500 MILLILITERS;AS NEEDED;OPHTHALMIC
     Route: 047
  3. CHLORAMPHENICOL [Concomitant]
  4. ASCORBIC ACID [Concomitant]

REACTIONS (2)
  - CALCINOSIS [None]
  - CORNEAL LESION [None]
